FAERS Safety Report 7296565-5 (Version None)
Quarter: 2011Q1

REPORT INFORMATION
  Report Type: 
  Country: None (occurrence: None)
  Receive Date: 20110216
  Receipt Date: 20110204
  Transmission Date: 20110831
  Serious: Yes (Other)
  Sender: FDA-Public Use
  Company Number: PHHY2011US10081

PATIENT
  Sex: Female

DRUGS (7)
  1. CALCIUM [Concomitant]
  2. MULTI-VITAMIN [Concomitant]
  3. SYNTHROID [Concomitant]
  4. RECLAST [Suspect]
     Dosage: UNK
     Dates: start: 20100608
  5. ASPIRIN [Concomitant]
  6. VITAMIN D [Concomitant]
  7. LIPITOR [Concomitant]

REACTIONS (3)
  - ORAL INFECTION [None]
  - GINGIVAL RECESSION [None]
  - DENTAL CARIES [None]
